FAERS Safety Report 18457043 (Version 1)
Quarter: 2020Q4

REPORT INFORMATION
  Report Type: Spontaneous
  Country: JP (occurrence: JP)
  Receive Date: 20201103
  Receipt Date: 20201103
  Transmission Date: 20210114
  Serious: Yes (Hospitalization)
  Sender: FDA-Public Use
  Company Number: JP-ELI_LILLY_AND_COMPANY-JP202010012982

PATIENT
  Age: 68 Year
  Sex: Female
  Weight: 37.8 kg

DRUGS (26)
  1. UPTRAVI [Suspect]
     Active Substance: SELEXIPAG
     Indication: PULMONARY ARTERIAL HYPERTENSION
     Dosage: 0.2 MG, BID
     Route: 048
     Dates: start: 20170112, end: 20170116
  2. NEXIUM [Concomitant]
     Active Substance: ESOMEPRAZOLE MAGNESIUM
     Indication: PROPHYLAXIS
     Dosage: 20 MG, DAILY
  3. UPTRAVI [Suspect]
     Active Substance: SELEXIPAG
     Dosage: 0.8 MG, BID
     Route: 048
     Dates: start: 20170304, end: 20170329
  4. OPSUMIT [Suspect]
     Active Substance: MACITENTAN
     Indication: PULMONARY ARTERIAL HYPERTENSION
     Dosage: 10 MG, DAILY
     Route: 048
  5. FEBURIC [Concomitant]
     Active Substance: FEBUXOSTAT
     Dosage: 40 MG, DAILY
     Dates: start: 20170805
  6. UPTRAVI [Suspect]
     Active Substance: SELEXIPAG
     Dosage: 0.6 MG, BID
     Route: 048
     Dates: start: 20170201, end: 20170303
  7. UPTRAVI [Suspect]
     Active Substance: SELEXIPAG
     Dosage: 1 MG, BID
     Route: 048
     Dates: start: 20170330, end: 20170426
  8. UPTRAVI [Suspect]
     Active Substance: SELEXIPAG
     Dosage: 1.4 MG, BID
     Route: 048
     Dates: start: 20180208
  9. DIART [Concomitant]
     Active Substance: AZOSEMIDE
     Dosage: UNK, UNKNOWN
  10. FEBURIC [Concomitant]
     Active Substance: FEBUXOSTAT
     Indication: HYPERURICAEMIA
     Dosage: 20 MG, DAILY
     Dates: start: 20170706, end: 20170804
  11. UPTRAVI [Suspect]
     Active Substance: SELEXIPAG
     Dosage: 0.4 MG, BID
     Route: 048
     Dates: start: 20170117, end: 20170119
  12. WARFARIN [WARFARIN POTASSIUM] [Concomitant]
     Active Substance: WARFARIN POTASSIUM
     Indication: PRODUCT USED FOR UNKNOWN INDICATION
     Dosage: UNK
  13. FUROSEMIDE. [Concomitant]
     Active Substance: FUROSEMIDE
     Indication: CARDIAC FAILURE
     Dosage: 80 MG, DAILY
  14. BEPRICOR [Suspect]
     Active Substance: BEPRIDIL
     Indication: ARRHYTHMIA
     Dosage: UNK, UNKNOWN
     Route: 065
     Dates: end: 20180704
  15. ADCIRCA [Suspect]
     Active Substance: TADALAFIL
     Indication: PULMONARY ARTERIAL HYPERTENSION
     Dosage: 40 MG, DAILY
     Route: 065
  16. UPTRAVI [Suspect]
     Active Substance: SELEXIPAG
     Dosage: 1.4 MG, BID
     Route: 048
     Dates: start: 20171123, end: 20180110
  17. FLUITRAN [Suspect]
     Active Substance: TRICHLORMETHIAZIDE
     Indication: CARDIAC FAILURE
     Dosage: 0.5 MG, DAILY
     Route: 048
     Dates: start: 20170710, end: 20170803
  18. DIART [Concomitant]
     Active Substance: AZOSEMIDE
     Dosage: 30 MG, DAILY
  19. SPIRONOLACTONE. [Concomitant]
     Active Substance: SPIRONOLACTONE
     Indication: CARDIAC FAILURE
     Dosage: 50 MG, DAILY
  20. FERROUS CITRATE NA [Concomitant]
     Active Substance: SODIUM FERROUS CITRATE
     Indication: ANAEMIA
     Dosage: 100 MG, DAILY
     Dates: end: 20170704
  21. UPTRAVI [Suspect]
     Active Substance: SELEXIPAG
     Dosage: 0.8 MG, BID
     Route: 048
     Dates: start: 20170124, end: 20170131
  22. UPTRAVI [Suspect]
     Active Substance: SELEXIPAG
     Dosage: 1.2 MG, BID
     Route: 048
     Dates: start: 20170427, end: 20171122
  23. UPTRAVI [Suspect]
     Active Substance: SELEXIPAG
     Dosage: 1.6 MG, BID
     Route: 048
     Dates: start: 20180111, end: 20180207
  24. UPTRAVI [Suspect]
     Active Substance: SELEXIPAG
     Dosage: 0.4 MG, BID
     Route: 048
     Dates: start: 20170120, end: 20170123
  25. CARELOAD [Concomitant]
     Active Substance: BERAPROST SODIUM
     Indication: PULMONARY ARTERIAL HYPERTENSION
     Dosage: 120 UG, DAILY
     Dates: end: 20170112
  26. DIART [Concomitant]
     Active Substance: AZOSEMIDE
     Indication: CARDIAC FAILURE
     Dosage: 60 MG, DAILY

REACTIONS (13)
  - Diarrhoea [Recovering/Resolving]
  - Atrial fibrillation [Recovered/Resolved]
  - Right ventricular failure [Recovering/Resolving]
  - Atrial tachycardia [Recovering/Resolving]
  - Malaise [Recovered/Resolved]
  - Dehydration [Recovered/Resolved]
  - Atrial tachycardia [Recovering/Resolving]
  - Nausea [Recovering/Resolving]
  - Headache [Recovering/Resolving]
  - Electrocardiogram QT prolonged [Recovered/Resolved]
  - Atrial flutter [Recovered/Resolved]
  - Atrial tachycardia [Recovered/Resolved]
  - Anaemia [Recovering/Resolving]

NARRATIVE: CASE EVENT DATE: 20170130
